FAERS Safety Report 26142364 (Version 1)
Quarter: 2025Q4

REPORT INFORMATION
  Report Type: Spontaneous
  Country: CN (occurrence: CN)
  Receive Date: 20251210
  Receipt Date: 20251210
  Transmission Date: 20260119
  Serious: Yes (Other)
  Sender: BEIGENE
  Company Number: CN-BEONEMEDICINES-BGN-2025-021829

PATIENT
  Age: 61 Year
  Sex: Male
  Weight: 59 kg

DRUGS (16)
  1. TISLELIZUMAB [Suspect]
     Active Substance: TISLELIZUMAB
     Indication: Non-small cell lung cancer stage IV
     Dosage: 200 MILLIGRAM, Q3WK
     Route: 041
     Dates: start: 20250605, end: 20250913
  2. TISLELIZUMAB [Suspect]
     Active Substance: TISLELIZUMAB
     Indication: Metastases to lymph nodes
     Dosage: 200 MILLIGRAM, Q3WK
     Dates: start: 20250605, end: 20250913
  3. TISLELIZUMAB [Suspect]
     Active Substance: TISLELIZUMAB
     Indication: Metastases to pleura
     Dosage: 200 MILLIGRAM, Q3WK
     Dates: start: 20250605, end: 20250913
  4. TISLELIZUMAB [Suspect]
     Active Substance: TISLELIZUMAB
     Indication: Metastases to adrenals
     Dosage: 200 MILLIGRAM, Q3WK
     Route: 041
     Dates: start: 20250605, end: 20250913
  5. TISLELIZUMAB [Suspect]
     Active Substance: TISLELIZUMAB
     Dosage: 200 MILLIGRAM, Q3WK
     Route: 041
     Dates: start: 20251005
  6. TISLELIZUMAB [Suspect]
     Active Substance: TISLELIZUMAB
     Dosage: 200 MILLIGRAM, Q3WK
     Dates: start: 20251005
  7. TISLELIZUMAB [Suspect]
     Active Substance: TISLELIZUMAB
     Dosage: 200 MILLIGRAM, Q3WK
     Dates: start: 20251005
  8. TISLELIZUMAB [Suspect]
     Active Substance: TISLELIZUMAB
     Dosage: 200 MILLIGRAM, Q3WK
     Route: 041
     Dates: start: 20251005
  9. NEDAPLATIN [Suspect]
     Active Substance: NEDAPLATIN
     Indication: Non-small cell lung cancer stage IV
     Dosage: 80 MILLIGRAM, Q3WK
     Dates: start: 20250605, end: 20250913
  10. NEDAPLATIN [Suspect]
     Active Substance: NEDAPLATIN
     Indication: Metastases to lymph nodes
     Dosage: 80 MILLIGRAM, Q3WK
     Route: 041
     Dates: start: 20250605, end: 20250913
  11. NEDAPLATIN [Suspect]
     Active Substance: NEDAPLATIN
     Indication: Metastases to pleura
     Dosage: 120 MILLIGRAM, Q3WK
     Dates: start: 20251006
  12. NEDAPLATIN [Suspect]
     Active Substance: NEDAPLATIN
     Indication: Metastases to adrenals
     Dosage: 120 MILLIGRAM, Q3WK
     Route: 041
     Dates: start: 20251006
  13. PACLITAXEL [Suspect]
     Active Substance: PACLITAXEL
     Indication: Non-small cell lung cancer stage IV
     Dosage: 400 MILLIGRAM, Q3WK
     Dates: start: 20250605, end: 20250913
  14. PACLITAXEL [Suspect]
     Active Substance: PACLITAXEL
     Indication: Metastases to lymph nodes
     Dosage: 400 MILLIGRAM, Q3WK
     Route: 041
     Dates: start: 20250605, end: 20250913
  15. PACLITAXEL [Suspect]
     Active Substance: PACLITAXEL
     Indication: Metastases to pleura
     Dosage: 400 MILLIGRAM, Q3WK
     Dates: start: 20251006
  16. PACLITAXEL [Suspect]
     Active Substance: PACLITAXEL
     Indication: Metastases to adrenals
     Dosage: 400 MILLIGRAM, Q3WK
     Route: 041
     Dates: start: 20251006

REACTIONS (14)
  - Immune-mediated lung disease [Not Recovered/Not Resolved]
  - Respiratory failure [Not Recovered/Not Resolved]
  - White blood cell count decreased [Not Recovered/Not Resolved]
  - Nausea [Not Recovered/Not Resolved]
  - Vomiting [Not Recovered/Not Resolved]
  - Feeding disorder [Not Recovered/Not Resolved]
  - Gastrooesophageal reflux disease [Not Recovered/Not Resolved]
  - Dyspepsia [Not Recovered/Not Resolved]
  - Pain [Not Recovered/Not Resolved]
  - Hypoaesthesia [Unknown]
  - Pain in extremity [Unknown]
  - Pyrexia [Unknown]
  - Decreased appetite [Unknown]
  - Fatigue [Unknown]

NARRATIVE: CASE EVENT DATE: 20251004
